FAERS Safety Report 5318767-7 (Version None)
Quarter: 2007Q2

REPORT INFORMATION
  Report Type: 
  Country: None (occurrence: None)
  Receive Date: 20070504
  Receipt Date: 20070504
  Transmission Date: 20071010
  Serious: Yes (Other)
  Sender: FDA-Public Use
  Company Number: None

PATIENT
  Age: 69 Year
  Sex: Female

DRUGS (5)
  1. PHENYTOIN SODIUM CAP [Suspect]
     Indication: ANEURYSM
  2. PHENYTOIN SODIUM CAP [Suspect]
     Indication: CONVULSION
  3. PHENYTOIN SODIUM CAP [Suspect]
     Indication: SCAR
  4. LIPITOR [Concomitant]
  5. HYDROCHLOROTHIAZIDE [Concomitant]

REACTIONS (4)
  - DRUG HYPERSENSITIVITY [None]
  - LYMPHADENOPATHY [None]
  - PAIN IN EXTREMITY [None]
  - PHARMACEUTICAL PRODUCT COMPLAINT [None]
